FAERS Safety Report 5796112-0 (Version None)
Quarter: 2008Q3

REPORT INFORMATION
  Report Type: 
  Country: None (occurrence: None)
  Receive Date: 20080701
  Receipt Date: 20080624
  Transmission Date: 20090109
  Serious: Yes (Hospitalization)
  Sender: FDA-Public Use
  Company Number: US-BRISTOL-MYERS SQUIBB COMPANY-14238547

PATIENT
  Age: 50 Year
  Sex: Male
  Weight: 66 kg

DRUGS (3)
  1. ERBITUX [Suspect]
     Indication: HEAD AND NECK CANCER
     Dosage: INITIATED ON:30-APR-08,COURSE ASSOCIATED WITH EXPEDIATED REPORT:27-MAY-08.
     Dates: start: 20080610, end: 20080610
  2. CISPLATIN [Suspect]
     Indication: HEAD AND NECK CANCER
     Dosage: INITIATED ON:30-APR-08,COURSE ASSOCIATED WITH EXPEDIATED REPORT:27-MAY-08. 100MG/M2 ON DAY 1 AND 8.
     Dates: start: 20080527, end: 20080527
  3. RADIATION THERAPY [Suspect]
     Indication: HEAD AND NECK CANCER
     Dosage: DOSAGE FORM = FRACTIONS; TOTAL DOSE = 3000GY; NO. OF ELAPSED DAYS:35.
     Dates: end: 20080611

REACTIONS (4)
  - FEBRILE NEUTROPENIA [None]
  - HAEMOGLOBIN DECREASED [None]
  - NEUTROPHIL COUNT DECREASED [None]
  - WHITE BLOOD CELL COUNT DECREASED [None]
